FAERS Safety Report 5393787-5 (Version None)
Quarter: 2007Q3

REPORT INFORMATION
  Report Type: 
  Country: None (occurrence: None)
  Receive Date: 20070723
  Receipt Date: 20070712
  Transmission Date: 20080115
  Serious: Yes (Hospitalization)
  Sender: FDA-Public Use
  Company Number: US-AMGEN-US233810

PATIENT
  Age: 55 Year
  Sex: Male

DRUGS (2)
  1. NEULASTA [Suspect]
     Indication: AUTOIMMUNE NEUTROPENIA
     Route: 058
     Dates: start: 20070701
  2. IMMUNOGLOBULINS [Concomitant]
     Route: 042
     Dates: start: 20070705

REACTIONS (3)
  - ARTHRALGIA [None]
  - RASH GENERALISED [None]
  - URTICARIA [None]
